FAERS Safety Report 5205264-2 (Version None)
Quarter: 2007Q1

REPORT INFORMATION
  Report Type: 
  Country: None (occurrence: None)
  Receive Date: 20070108
  Receipt Date: 20061227
  Transmission Date: 20070707
  Serious: Yes (Death)
  Sender: FDA-Public Use
  Company Number: 234228

PATIENT
  Age: 79 Year
  Sex: Female
  Weight: 57 kg

DRUGS (14)
  1. MABTHERA (RITUXIMAB) CONC FOR SOLUTION FOR INFUSION [Suspect]
     Indication: DRUG USE FOR UNKNOWN INDICATION
     Dosage: 375 MG, Q4W, INTRAVENOUS
     Route: 042
     Dates: start: 20061208
  2. ASPIRIN [Concomitant]
  3. ENALAPRIL MALEATE [Concomitant]
  4. SIMVASTATIN [Concomitant]
  5. CARBAMAZEPINE [Concomitant]
  6. TOREM (TORSEMIDE) [Concomitant]
  7. DAFALGAN (ACETAMINOPHEN) [Concomitant]
  8. ENOXAPARIN SODIUM [Concomitant]
  9. ACTRAPID (INSULIN) [Concomitant]
  10. LANTUS [Concomitant]
  11. NOVALGIN (DIPYRONE) [Concomitant]
  12. LACTULOSE [Concomitant]
  13. VANCOMYCIN HYDROCHLORIDE [Concomitant]
  14. TAZOBACTAM [Concomitant]

REACTIONS (6)
  - BACTERIAL INFECTION [None]
  - JOINT SWELLING [None]
  - OEDEMA PERIPHERAL [None]
  - PULMONARY EMBOLISM [None]
  - SEPSIS [None]
  - SEPTIC SHOCK [None]
